FAERS Safety Report 7450479-6 (Version None)
Quarter: 2011Q2

REPORT INFORMATION
  Report Type: 
  Country: None (occurrence: None)
  Receive Date: 20110502
  Receipt Date: 20110419
  Transmission Date: 20111010
  Serious: No
  Sender: FDA-Public Use
  Company Number: PHHY2011US34451

PATIENT
  Age: 67 Year
  Sex: Female

DRUGS (7)
  1. ADVAIR DISKUS 100/50 [Concomitant]
  2. PROVENTIL [Concomitant]
  3. TASIGNA [Suspect]
     Dosage: 400 MG, BID
  4. MULTIVITAMIN [Concomitant]
  5. HYDROCHLOROTHIAZIDE [Concomitant]
     Dosage: 12.5 MG, QD
  6. LYRICA [Concomitant]
     Dosage: 150 MEQ/KG, BID
  7. METOPROLOL SUCCINATE [Concomitant]
     Dosage: 50 MG, QD

REACTIONS (4)
  - PRURITUS [None]
  - OCULAR HYPERAEMIA [None]
  - RASH [None]
  - DRY SKIN [None]
